FAERS Safety Report 24764494 (Version 1)
Quarter: 2024Q4

REPORT INFORMATION
  Report Type: Spontaneous
  Country: US (occurrence: US)
  Receive Date: 20241223
  Receipt Date: 20241223
  Transmission Date: 20250114
  Serious: Yes (Death, Hospitalization, Other)
  Sender: GLAXOSMITHKLINE
  Company Number: US-GSK-US2024GSK160722

PATIENT

DRUGS (3)
  1. BUPROPION HYDROCHLORIDE XL [Suspect]
     Active Substance: BUPROPION HYDROCHLORIDE
     Indication: Product used for unknown indication
     Dosage: 300 MG, 60 TABLETS
     Route: 048
  2. HYOSCYAMINE [Concomitant]
     Active Substance: HYOSCYAMINE
     Indication: Product used for unknown indication
     Dosage: UNK
  3. ETONOGESTREL AND ETHINYL ESTRADIOL [Concomitant]
     Active Substance: ETHINYL ESTRADIOL\ETONOGESTREL
     Indication: Product used for unknown indication
     Dosage: UNK

REACTIONS (11)
  - Suspected suicide [Fatal]
  - Overdose [Fatal]
  - Dysarthria [Fatal]
  - Depressed level of consciousness [Fatal]
  - Seizure [Fatal]
  - Postictal state [Fatal]
  - Myoclonus [Fatal]
  - Tachycardia [Fatal]
  - Hypotension [Fatal]
  - Cardiac arrest [Fatal]
  - Acidosis [Fatal]
